FAERS Safety Report 24104466 (Version 2)
Quarter: 2024Q3

REPORT INFORMATION
  Report Type: Spontaneous
  Country: DE (occurrence: DE)
  Receive Date: 20240717
  Receipt Date: 20240823
  Transmission Date: 20241017
  Serious: Yes (Hospitalization)
  Sender: ALK-ABELLO
  Company Number: DE-ALKABELLO A/S-2024AA002740

PATIENT

DRUGS (2)
  1. GRAZAX [Suspect]
     Active Substance: PHLEUM PRATENSE POLLEN
     Indication: Product used for unknown indication
     Dosage: 75000 SQ-T
     Route: 060
     Dates: start: 202301
  2. ACARIZAX [Concomitant]
     Active Substance: DERMATOPHAGOIDES FARINAE\DERMATOPHAGOIDES PTERONYSSINUS
     Dosage: UNK
     Route: 060
     Dates: start: 202402

REACTIONS (1)
  - Solar dermatitis [Not Recovered/Not Resolved]

NARRATIVE: CASE EVENT DATE: 20230101
